FAERS Safety Report 5574921-0 (Version None)
Quarter: 2007Q4

REPORT INFORMATION
  Report Type: 
  Country: None (occurrence: None)
  Receive Date: 20071227
  Receipt Date: 20071217
  Transmission Date: 20080405
  Serious: Yes (Death)
  Sender: FDA-Public Use
  Company Number: A0559966A

PATIENT
  Age: 42 Year
  Sex: Female
  Weight: 56.8 kg

DRUGS (3)
  1. PAXIL CR [Suspect]
     Route: 048
     Dates: start: 20031115, end: 20031223
  2. XANAX [Concomitant]
  3. ATIVAN [Concomitant]

REACTIONS (9)
  - ASPHYXIA [None]
  - COMPLETED SUICIDE [None]
  - DIARRHOEA [None]
  - FEAR [None]
  - INSOMNIA [None]
  - MALAISE [None]
  - PAIN [None]
  - PARANOIA [None]
  - TREMOR [None]
